FAERS Safety Report 10374865 (Version 1)
Quarter: 2014Q3

REPORT INFORMATION
  Report Type: Spontaneous
  Country: US (occurrence: US)
  Receive Date: 20140811
  Receipt Date: 20140811
  Transmission Date: 20150326
  Serious: Yes (Hospitalization)
  Sender: FDA-Public Use
  Company Number: US-ROXANE LABORATORIES, INC.-2014-RO-01213RO

PATIENT
  Age: 50 Year
  Sex: Female

DRUGS (43)
  1. PREDNISONE. [Suspect]
     Active Substance: PREDNISONE
     Indication: RENAL TRANSPLANT
     Route: 065
  2. ACETAMINOPHEN. [Concomitant]
     Active Substance: ACETAMINOPHEN
     Route: 065
  3. DILTIAZEM [Concomitant]
     Active Substance: DILTIAZEM
     Route: 065
  4. PROPOFOL. [Concomitant]
     Active Substance: PROPOFOL
     Route: 065
  5. FISH OIL [Concomitant]
     Active Substance: FISH OIL
     Route: 065
  6. NEXIUM [Concomitant]
     Active Substance: ESOMEPRAZOLE MAGNESIUM
     Route: 065
  7. HYDROMORPHONE [Concomitant]
     Active Substance: HYDROMORPHONE
     Route: 065
  8. ANCEF [Concomitant]
     Active Substance: CEFAZOLIN SODIUM
     Route: 065
  9. FUROSEMIDE. [Concomitant]
     Active Substance: FUROSEMIDE
     Route: 065
  10. MIDAZOLAM [Concomitant]
     Active Substance: MIDAZOLAM\MIDAZOLAM HYDROCHLORIDE
     Route: 065
  11. CELLCEPT [Suspect]
     Active Substance: MYCOPHENOLATE MOFETIL\MYCOPHENOLATE MOFETIL HYDROCHLORIDE
     Indication: RENAL TRANSPLANT
     Route: 065
  12. DARBEPOETIN [Concomitant]
     Active Substance: DARBEPOETIN ALFA
     Route: 065
  13. INSULIN LISPRO [Concomitant]
     Active Substance: INSULIN LISPRO
     Route: 065
  14. PANTOPRAZOLE [Concomitant]
     Active Substance: PANTOPRAZOLE SODIUM
     Route: 065
  15. SEPTRA [Concomitant]
     Active Substance: SULFAMETHOXAZOLE\TRIMETHOPRIM
     Route: 065
  16. VALGANCICLOVIR [Concomitant]
     Active Substance: VALGANCICLOVIR
     Route: 065
  17. ESMOLOL [Concomitant]
     Active Substance: ESMOLOL HYDROCHLORIDE
     Route: 065
  18. HUMAN SERUM ALBUMIN [Concomitant]
     Route: 065
  19. THYMOGLOBULIN [Suspect]
     Active Substance: LAPINE T-LYMPHOCYTE IMMUNE GLOBULIN
     Indication: RENAL TRANSPLANT
     Route: 065
  20. ATROVASTATIN [Concomitant]
     Active Substance: ATORVASTATIN CALCIUM
     Route: 065
  21. DULCOLAX [Concomitant]
     Active Substance: BISACODYL OR DOCUSATE SODIUM
     Route: 065
  22. DIPHENHYDRAMINE [Concomitant]
     Active Substance: DIPHENHYDRAMINE
     Route: 065
  23. DOCUSATE SODIUM. [Concomitant]
     Active Substance: DOCUSATE SODIUM
     Route: 065
  24. ERGOCALCIFEROL. [Concomitant]
     Active Substance: ERGOCALCIFEROL
     Route: 065
  25. ONDANSETRON [Concomitant]
     Active Substance: ONDANSETRON
     Route: 065
  26. TACROLIMUS. [Suspect]
     Active Substance: TACROLIMUS
     Indication: RENAL TRANSPLANT
     Route: 065
  27. HYDROCODONE [Concomitant]
     Active Substance: HYDROCODONE
     Route: 065
  28. NPH INSULIN [Concomitant]
     Active Substance: INSULIN BEEF
     Route: 065
  29. NIFEDIPINE SR [Concomitant]
     Active Substance: NIFEDIPINE
     Route: 065
  30. CALCIUM CHLORIDE. [Concomitant]
     Active Substance: CALCIUM CHLORIDE
     Route: 065
  31. LIDOCAINE. [Concomitant]
     Active Substance: LIDOCAINE
     Route: 065
  32. FAMOTIDINE. [Concomitant]
     Active Substance: FAMOTIDINE
     Route: 065
  33. BLINDED STUDY THERAPY [Suspect]
     Active Substance: INVESTIGATIONAL PRODUCT
     Indication: RENAL TRANSPLANT
     Route: 042
     Dates: start: 20130401
  34. METHYLPREDNISOLONE [Suspect]
     Active Substance: METHYLPREDNISOLONE
     Indication: RENAL TRANSPLANT
     Route: 065
  35. FOLBEE PLUS CZ [Concomitant]
     Route: 065
  36. MANNITOL. [Concomitant]
     Active Substance: MANNITOL
     Route: 065
  37. GLYCOPYRROLATE. [Concomitant]
     Active Substance: GLYCOPYRROLATE
     Route: 065
  38. NEOSTIGMINE [Concomitant]
     Active Substance: NEOSTIGMINE
     Route: 065
  39. CLOTRIMAZOLE TROCHES [Concomitant]
     Route: 065
  40. CISATRACURIUM [Concomitant]
     Active Substance: CISATRACURIUM
     Route: 065
  41. FENTANYL. [Concomitant]
     Active Substance: FENTANYL
     Route: 065
  42. CLONIDINE. [Concomitant]
     Active Substance: CLONIDINE
     Route: 065
  43. METOPROLOL TARTATE [Concomitant]
     Active Substance: METOPROLOL TARTRATE
     Route: 065

REACTIONS (3)
  - Palpitations [None]
  - Pain in extremity [None]
  - Panic attack [Recovered/Resolved]

NARRATIVE: CASE EVENT DATE: 20130407
